FAERS Safety Report 9423735 (Version 2)
Quarter: 2014Q1

REPORT INFORMATION
  Report Type: Spontaneous
  Country: RO (occurrence: RO)
  Receive Date: 20130728
  Receipt Date: 20140222
  Transmission Date: 20141002
  Serious: Yes (Death, Congenital Anomaly, Other)
  Sender: FDA-Public Use
  Company Number: PHHY2013RO079212

PATIENT
  Sex: 0

DRUGS (2)
  1. CARBAMAZEPINE [Suspect]
     Dosage: MATERNAL DOSE: 0.4 G PER DAY
     Route: 064
  2. PHENOBARBITAL [Interacting]
     Dosage: MATERNAL DOSE: 0.1 G PER DAY
     Route: 064

REACTIONS (13)
  - Stillbirth [Fatal]
  - Sirenomelia [Unknown]
  - Congenital genital malformation [Unknown]
  - Congenital foot malformation [Unknown]
  - Single functional kidney [Unknown]
  - Anal atresia [Unknown]
  - Congenital nose malformation [Unknown]
  - Anomaly of external ear congenital [Unknown]
  - Brachydactyly [Unknown]
  - Prognathism [Unknown]
  - Low birth weight baby [Unknown]
  - Drug interaction [Unknown]
  - Foetal exposure during pregnancy [Unknown]
